FAERS Safety Report 16681613 (Version 1)
Quarter: 2019Q3

REPORT INFORMATION
  Report Type: Spontaneous
  Country: DE (occurrence: DE)
  Receive Date: 20190808
  Receipt Date: 20190808
  Transmission Date: 20191004
  Serious: Yes (Hospitalization)
  Sender: FDA-Public Use
  Company Number: DE-HIKMA PHARMACEUTICALS USA INC.-DE-H14001-19-46413

PATIENT
  Sex: Male

DRUGS (2)
  1. CIPROFLOXACIN. [Suspect]
     Active Substance: CIPROFLOXACIN
     Indication: PERIODONTAL DISEASE
     Dosage: 1-0-1
     Route: 065
     Dates: start: 2017
  2. METRONIDAZOL [Suspect]
     Active Substance: METRONIDAZOLE
     Indication: PERIODONTAL DISEASE
     Dosage: 1-1-1
     Route: 065
     Dates: start: 2017

REACTIONS (2)
  - Arthropathy [Not Recovered/Not Resolved]
  - Rash generalised [Unknown]

NARRATIVE: CASE EVENT DATE: 2017
